FAERS Safety Report 6081163-1 (Version None)
Quarter: 2009Q1

REPORT INFORMATION
  Report Type: 
  Country: None (occurrence: None)
  Receive Date: 20090213
  Receipt Date: 20090130
  Transmission Date: 20090719
  Serious: Yes (Other)
  Sender: FDA-Public Use
  Company Number: 230054M08DEU

PATIENT
  Age: 30 Year
  Sex: Female
  Weight: 98 kg

DRUGS (3)
  1. REBIF [Suspect]
     Indication: MULTIPLE SCLEROSIS
     Dosage: 1 DOSAGE FORMS, 1 IN 3 DAYS
     Dates: start: 20041214, end: 20070116
  2. FTY 720 (FTY 720) [Suspect]
     Indication: MULTIPLE SCLEROSIS
     Dosage: 1 DOSAGE FORMS, 1 IN 1 DAYS
     Dates: start: 20070206, end: 20080409
  3. CORTISONE (CORTISONE) [Concomitant]

REACTIONS (8)
  - ARTHRALGIA [None]
  - DRUG INEFFECTIVE [None]
  - FATIGUE [None]
  - GAIT DISTURBANCE [None]
  - MUSCLE SPASTICITY [None]
  - PARESIS [None]
  - SECONDARY PROGRESSIVE MULTIPLE SCLEROSIS [None]
  - SKIN NECROSIS [None]
